FAERS Safety Report 21174110 (Version 1)
Quarter: 2022Q3

REPORT INFORMATION
  Report Type: Report from Study
  Country: RS (occurrence: RS)
  Receive Date: 20220804
  Receipt Date: 20220804
  Transmission Date: 20221027
  Serious: Yes (Hospitalization, Other)
  Sender: FDA-Public Use
  Company Number: RS-CELGENE-SBR-20210605409

PATIENT
  Age: 41 Year
  Sex: Female

DRUGS (4)
  1. OZANIMOD [Suspect]
     Active Substance: OZANIMOD
     Indication: Relapsing multiple sclerosis
     Dosage: 1 MILLIGRAM
     Route: 048
     Dates: start: 20160411, end: 20211007
  2. DROSPIRENONE\ETHINYL ESTRADIOL [Concomitant]
     Active Substance: DROSPIRENONE\ETHINYL ESTRADIOL
     Indication: Contraception
     Dosage: DAILY DOSE : 1 TABLET?UNIT DOSE : 1 TABLET?1 TABLET
     Route: 048
     Dates: start: 20170422
  3. XANAX [Concomitant]
     Active Substance: ALPRAZOLAM
     Indication: Anxiety
     Dosage: 0.5 MILLIGRAM
     Route: 048
     Dates: start: 20191206
  4. Phizer/Biontech vaccine [Concomitant]
     Indication: Immunisation
     Dosage: FREQUENCY TEXT: ONCE
     Route: 030
     Dates: start: 20210515, end: 20210515

REACTIONS (1)
  - Nephroblastoma [Recovered/Resolved]

NARRATIVE: CASE EVENT DATE: 20210603
